FAERS Safety Report 19978334 (Version 1)
Quarter: 2021Q4

REPORT INFORMATION
  Report Type: Spontaneous
  Country: US (occurrence: US)
  Receive Date: 20211020
  Receipt Date: 20211020
  Transmission Date: 20220303
  Serious: No
  Sender: FDA-Public Use
  Company Number: None

PATIENT
  Age: 78 Year
  Sex: Male
  Weight: 58 kg

DRUGS (1)
  1. AMIODARONE HYDROCHLORIDE [Suspect]
     Active Substance: AMIODARONE HYDROCHLORIDE
     Indication: Atrial fibrillation
     Route: 048
     Dates: end: 20211007

REACTIONS (6)
  - Pneumonia [None]
  - Atrial fibrillation [None]
  - Dyspnoea [None]
  - Pulmonary fibrosis [None]
  - Respiratory depression [None]
  - Hypersensitivity [None]

NARRATIVE: CASE EVENT DATE: 20210914
